FAERS Safety Report 4389311-6 (Version None)
Quarter: 2004Q3

REPORT INFORMATION
  Report Type: 
  Country: None (occurrence: None)
  Receive Date: 20040702
  Receipt Date: 20040407
  Transmission Date: 20050211
  Serious: Yes (Other)
  Sender: FDA-Public Use
  Company Number: US-ROCHE-364108

PATIENT
  Age: 44 Year
  Sex: Female

DRUGS (2)
  1. PEGASYS [Suspect]
     Indication: HEPATITIS C
     Route: 065
     Dates: start: 20040315
  2. COPEGUS [Suspect]
     Indication: HEPATITIS C
     Dosage: 600 MG TAKEN AM AND 400 MG TAKEN PM.
     Route: 048
     Dates: start: 20040315

REACTIONS (6)
  - CONSTIPATION [None]
  - DRY SKIN [None]
  - GENITAL PAIN [None]
  - GENITAL PRURITUS FEMALE [None]
  - VAGINAL BURNING SENSATION [None]
  - VAGINAL HAEMORRHAGE [None]
